FAERS Safety Report 5343444-6 (Version None)
Quarter: 2007Q2

REPORT INFORMATION
  Report Type: 
  Country: None (occurrence: None)
  Receive Date: 20070531
  Receipt Date: 20060411
  Transmission Date: 20071010
  Serious: Yes (Hospitalization)
  Sender: FDA-Public Use
  Company Number: 2006VX000415

PATIENT
  Age: 76 Year
  Sex: Male

DRUGS (1)
  1. FLURAZEPAM HYDROCHLORIDE [Suspect]
     Dosage: PO
     Route: 048

REACTIONS (3)
  - INCORRECT DOSE ADMINISTERED [None]
  - SUICIDE ATTEMPT [None]
  - UNEVALUABLE EVENT [None]
